FAERS Safety Report 26079501 (Version 1)
Quarter: 2025Q4

REPORT INFORMATION
  Report Type: Spontaneous
  Country: US (occurrence: US)
  Receive Date: 20251123
  Receipt Date: 20251123
  Transmission Date: 20260117
  Serious: No
  Sender: GALPHARM INTERNATIONAL
  Company Number: US-PERRIGO-25US012503

PATIENT
  Age: 45 Year
  Sex: Female
  Weight: 108.39 kg

DRUGS (7)
  1. OPILL [Suspect]
     Active Substance: NORGESTREL
     Indication: Contraception
     Dosage: 0.15 MG, QHS
     Route: 048
     Dates: start: 20251017, end: 20251019
  2. LEVOTHYROXINE [Concomitant]
     Active Substance: LEVOTHYROXINE
     Indication: Thyroid disorder
     Dosage: UNKNOWN, UNKNOWN
     Route: 065
  3. CRESTOR [Concomitant]
     Active Substance: ROSUVASTATIN CALCIUM
     Indication: Blood cholesterol increased
     Dosage: UNKNOWN, UNKNOWN
     Route: 065
  4. CELECOXIB [Concomitant]
     Active Substance: CELECOXIB
     Indication: Anxiety
     Dosage: UNKNOWN, UNKNOWN
     Route: 065
  5. XANAX [Concomitant]
     Active Substance: ALPRAZOLAM
     Indication: Anxiety
     Dosage: UNKNOWN, UNKNOWN
     Route: 065
  6. CANNABIS SATIVA SUBSP. INDICA TOP [Concomitant]
     Active Substance: CANNABIS SATIVA SUBSP. INDICA TOP
     Indication: Anxiety
  7. MY CHOICE TM [Suspect]
     Active Substance: LEVONORGESTREL
     Indication: Contraception
     Dosage: 1 TABLET, SINGLE
     Route: 048

REACTIONS (5)
  - Incorrect dose administered [Recovered/Resolved]
  - Vaginal haemorrhage [Recovering/Resolving]
  - Dysmenorrhoea [Recovering/Resolving]
  - Back pain [Recovering/Resolving]
  - Extra dose administered [Recovered/Resolved]

NARRATIVE: CASE EVENT DATE: 20251017
